FAERS Safety Report 6342383-1 (Version None)
Quarter: 2009Q3

REPORT INFORMATION
  Report Type: 
  Country: None (occurrence: None)
  Receive Date: 20090908
  Receipt Date: 20090901
  Transmission Date: 20100115
  Serious: Yes (Hospitalization)
  Sender: FDA-Public Use
  Company Number: JP-BRACCO-002431

PATIENT
  Age: 80 Year
  Sex: Male

DRUGS (13)
  1. IOPAMIDOL [Suspect]
     Indication: HEPATIC NEOPLASM MALIGNANT
     Dosage: 2-8 ML/MIN
     Route: 013
     Dates: start: 20090729, end: 20090729
  2. IOPAMIDOL [Suspect]
     Indication: ANGIOGRAM
     Dates: start: 20090819, end: 20090819
  3. TRANSAMIN [Concomitant]
  4. ADONA [Concomitant]
  5. FUROSEMIDE [Concomitant]
  6. PRIMOVIST [Suspect]
     Indication: NUCLEAR MAGNETIC RESONANCE IMAGING
     Route: 042
     Dates: start: 20090728, end: 20090728
  7. PRIMOVIST [Suspect]
     Indication: HEPATIC NEOPLASM MALIGNANT
     Route: 042
     Dates: start: 20090728, end: 20090728
  8. PROHANCE [Suspect]
     Indication: NUCLEAR MAGNETIC RESONANCE IMAGING
     Route: 042
     Dates: start: 20090731, end: 20090731
  9. PROHANCE [Suspect]
     Indication: METASTASES TO CENTRAL NERVOUS SYSTEM
     Route: 042
     Dates: start: 20090731, end: 20090731
  10. SOLITA-T 3G [Concomitant]
     Route: 042
     Dates: start: 20090729
  11. SEISHOKU [Concomitant]
     Dosage: 1L/17HR
     Route: 042
     Dates: start: 20090819
  12. I.V. SOLUTIONS [Concomitant]
     Dates: start: 20090805
  13. I.V. SOLUTIONS [Concomitant]
     Dates: start: 20090803

REACTIONS (1)
  - RENAL IMPAIRMENT [None]
